FAERS Safety Report 21933743 (Version 2)
Quarter: 2023Q1

REPORT INFORMATION
  Report Type: Report from Study
  Country: US (occurrence: US)
  Receive Date: 20230201
  Receipt Date: 20230206
  Transmission Date: 20230418
  Serious: No
  Sender: FDA-Public Use
  Company Number: US-002147023-NVSC2023US018206

PATIENT
  Sex: Male

DRUGS (1)
  1. ENTRESTO [Suspect]
     Active Substance: SACUBITRIL\VALSARTAN
     Indication: Product used for unknown indication
     Dosage: 24/26 MG 2, 2 DAYS (THEN WOULD BE ON 49/51 MG)
     Route: 065

REACTIONS (4)
  - Musculoskeletal discomfort [Unknown]
  - Stress [Unknown]
  - Headache [Unknown]
  - Fatigue [Unknown]
